FAERS Safety Report 5245246-8 (Version None)
Quarter: 2007Q1

REPORT INFORMATION
  Report Type: 
  Country: None (occurrence: None)
  Receive Date: 20070223
  Receipt Date: 20070221
  Transmission Date: 20070707
  Serious: Yes (Disabling)
  Sender: FDA-Public Use
  Company Number: DK-BRISTOL-MYERS SQUIBB COMPANY-13685557

PATIENT
  Age: 60 Year
  Sex: Female

DRUGS (4)
  1. ABILIFY [Suspect]
     Indication: PSYCHOTIC DISORDER
     Dosage: TX WAS STARTED AGAIN AFTER 19 DAYS AND THEN ABATED AGAIN AFTER 16 DAYS
     Route: 048
     Dates: start: 20060807, end: 20060913
  2. RISPERDAL [Concomitant]
     Dates: start: 20060112
  3. LITAREX [Concomitant]
     Dates: start: 20060108
  4. OXAZEPAM [Concomitant]
     Dates: start: 20060108

REACTIONS (1)
  - PLEUROTHOTONUS [None]
